FAERS Safety Report 7248099-1 (Version None)
Quarter: 2011Q1

REPORT INFORMATION
  Report Type: 
  Country: None (occurrence: None)
  Receive Date: 20110127
  Receipt Date: 20110120
  Transmission Date: 20110831
  Serious: Yes (Hospitalization)
  Sender: FDA-Public Use
  Company Number: NL-ABBOTT-10P-114-0665019-00

PATIENT
  Sex: Female
  Weight: 72 kg

DRUGS (16)
  1. MEDROXYPROGESTERONE [Concomitant]
     Indication: PRODUCT USED FOR UNKNOWN INDICATION
     Dosage: 1 ML FOR INJECTION, DISPOSABLE SYRINGE
     Dates: start: 20100101, end: 20100101
  2. HUMAN MENOPAUSAL GONADOTROPIN POWDER FOR INJECTION 75 IU FLACON [Concomitant]
     Indication: PRODUCT USED FOR UNKNOWN INDICATION
     Dates: start: 20100101, end: 20100101
  3. CALCIUM CARBONATE/COLICALCIFEROL EFFERVESCENT GRANULATE [Concomitant]
     Indication: OSTEOPOROSIS PROPHYLAXIS
     Dosage: ONE UNIT OF 1.25 G/400 IU EVERY DAY
     Route: 048
     Dates: start: 20090301
  4. DESLORATADINE [Concomitant]
     Indication: TYMPANIC MEMBRANE DISORDER
     Dosage: FORM STRENGTH: 5MG COATED TABLET
     Route: 048
     Dates: start: 20100701, end: 20100701
  5. LUCRIN [Suspect]
     Route: 058
     Dates: start: 20060601, end: 20061201
  6. LUCRIN [Suspect]
     Route: 058
     Dates: start: 20100420, end: 20110113
  7. CINNARIZINE [Concomitant]
     Indication: EAR INFECTION VIRAL
     Route: 048
     Dates: start: 20100730, end: 20100808
  8. LUCRIN [Suspect]
     Indication: ENDOMETRIOSIS
     Route: 058
     Dates: start: 20080523, end: 20081112
  9. OMEPRAZOLE [Concomitant]
     Indication: GASTRIC DISORDER
     Route: 048
     Dates: end: 20100101
  10. DOMPERIDON [Concomitant]
     Indication: NAUSEA
     Route: 048
     Dates: start: 20100730, end: 20100808
  11. DICLOFENAC/MISOPROSTOL TABLET MGA 50MG/200MCG [Concomitant]
     Indication: DYSMENORRHOEA
     Route: 048
     Dates: end: 20100101
  12. CROMOGLYCINIC ACID 20 MG/ML FLACON 10 ML [Concomitant]
     Indication: SEASONAL ALLERGY
     Dosage: AS NEEDED IN THE SPRING
     Route: 047
     Dates: start: 20060101
  13. OMEPRAZOLE [Concomitant]
     Indication: PROPHYLAXIS
  14. NORETHISTERONE [Concomitant]
     Indication: DYSMENORRHOEA
     Route: 048
     Dates: start: 20091001, end: 20091101
  15. TRAMADOL HCL [Concomitant]
     Indication: DYSMENORRHOEA
     Route: 048
     Dates: end: 20100101
  16. PARACETAMOL [Concomitant]
     Indication: DYSMENORRHOEA
     Route: 048
     Dates: end: 20100101

REACTIONS (3)
  - ARTHROPATHY [None]
  - NAUSEA [None]
  - GALLBLADDER DISORDER [None]
